FAERS Safety Report 5359100-4 (Version None)
Quarter: 2007Q2

REPORT INFORMATION
  Report Type: 
  Country: None (occurrence: None)
  Receive Date: 20070530
  Receipt Date: 20070331
  Transmission Date: 20071010
  Serious: No
  Sender: FDA-Public Use
  Company Number: 2007PV032737

PATIENT
  Age: 59 Year
  Sex: Female

DRUGS (4)
  1. BYETTA [Suspect]
     Indication: DIABETES MELLITUS NON-INSULIN-DEPENDENT
     Dosage: SEE IMAGE
     Route: 058
     Dates: start: 20050101
  2. METFORMIN HCL [Concomitant]
  3. GLIPIZIDE [Concomitant]
  4. AVANDIA [Concomitant]

REACTIONS (4)
  - BLOOD GLUCOSE INCREASED [None]
  - EPISTAXIS [None]
  - INFLUENZA [None]
  - INJECTION SITE BRUISING [None]
